FAERS Safety Report 4333686-0 (Version None)
Quarter: 2004Q2

REPORT INFORMATION
  Report Type: 
  Country: None (occurrence: None)
  Receive Date: 20040402
  Receipt Date: 20040322
  Transmission Date: 20050107
  Serious: Yes (Hospitalization)
  Sender: FDA-Public Use
  Company Number: USA-2003-0013455

PATIENT
  Age: 38 Year
  Sex: Male
  Weight: 107.5 kg

DRUGS (12)
  1. OXYCODONE HCL [Suspect]
     Indication: PAIN
     Dosage: 5 MG, DAILY, ORAL
     Route: 048
  2. OXYCONTIN [Suspect]
     Indication: PAIN
     Dosage: 20 MG, BID, ORAL
     Route: 048
  3. COUMADIN [Concomitant]
  4. CELEXA [Concomitant]
  5. PRILOSEC [Concomitant]
  6. ZESTRIL [Concomitant]
  7. BACLOFEN [Concomitant]
  8. LORTAB [Concomitant]
  9. ALBUTEROL [Concomitant]
  10. COMBIVENT [Concomitant]
  11. CLONIDINE [Concomitant]
  12. NEURONTIN [Concomitant]

REACTIONS (18)
  - ARTHRALGIA [None]
  - ASTHENIA [None]
  - BACK PAIN [None]
  - BURNING SENSATION [None]
  - CHEST PAIN [None]
  - DEEP VEIN THROMBOSIS [None]
  - DYSPNOEA [None]
  - FATIGUE [None]
  - FLANK PAIN [None]
  - GROIN PAIN [None]
  - HEADACHE [None]
  - HYPOAESTHESIA [None]
  - HYPOXIA [None]
  - INTERNATIONAL NORMALISED RATIO DECREASED [None]
  - OEDEMA PERIPHERAL [None]
  - PAIN IN EXTREMITY [None]
  - PARAESTHESIA [None]
  - PULMONARY EMBOLISM [None]
